FAERS Safety Report 16778775 (Version 1)
Quarter: 2019Q3

REPORT INFORMATION
  Report Type: Spontaneous
  Country: TR (occurrence: TR)
  Receive Date: 20190906
  Receipt Date: 20190906
  Transmission Date: 20191005
  Serious: Yes (Hospitalization, Other)
  Sender: FDA-Public Use
  Company Number: TR-SA-2019SA239532

PATIENT
  Age: 53 Year
  Sex: Male

DRUGS (4)
  1. CILOSTAZOL. [Suspect]
     Active Substance: CILOSTAZOL
     Indication: ANTICOAGULANT THERAPY
     Dosage: 100 MG, BID
     Route: 048
  2. BELOC [METOPROLOL SUCCINATE] [Concomitant]
     Active Substance: METOPROLOL SUCCINATE
     Indication: ANTICOAGULANT THERAPY
     Dosage: 50 MG, BID
     Route: 048
  3. COUMADIN [Suspect]
     Active Substance: WARFARIN SODIUM
     Indication: ANTICOAGULANT THERAPY
     Dosage: 5 MG, BID
     Route: 048
  4. CLEXANE [Suspect]
     Active Substance: ENOXAPARIN SODIUM
     Indication: ANTICOAGULANT THERAPY
     Dosage: 6000 IU, BID
     Route: 048

REACTIONS (8)
  - Pain [Recovered/Resolved]
  - Movement disorder [Recovered/Resolved]
  - Hypoaesthesia [Recovered/Resolved]
  - Musculoskeletal stiffness [Recovered/Resolved]
  - Haematoma [Recovered/Resolved]
  - Compartment syndrome [Recovered/Resolved]
  - Tenderness [Recovered/Resolved]
  - Peripheral swelling [Recovered/Resolved]
